FAERS Safety Report 22140063 (Version 1)
Quarter: 2023Q1

REPORT INFORMATION
  Report Type: Report from Study
  Country: IT (occurrence: None)
  Receive Date: 20230327
  Receipt Date: 20230327
  Transmission Date: 20230417
  Serious: Yes (Hospitalization)
  Sender: FDA-Public Use
  Company Number: IT-ROCHE-2945813

PATIENT
  Age: 46 Year
  Sex: Male
  Weight: 86 kg

DRUGS (7)
  1. VENETOCLAX [Suspect]
     Active Substance: VENETOCLAX
     Indication: Chronic lymphocytic leukaemia
     Dosage: ON 09/OCT/2021, HE RECEIVED MOST RECENT DOSE (400 MG) OF VENETOCLAX PRIOR TO ONSET OF AE.
     Route: 048
     Dates: start: 20210104
  2. OBINUTUZUMAB [Suspect]
     Active Substance: OBINUTUZUMAB
     Indication: Chronic lymphocytic leukaemia
     Dosage: ON 04/MAY/2021, HE RECEIVED MOST RECENT DOSE (1000 MG) OF VENETOCLAX PRIOR TO ONSET OF AE.
     Route: 042
     Dates: start: 20201214
  3. VALACYCLOVIR HYDROCHLORIDE [Concomitant]
     Active Substance: VALACYCLOVIR HYDROCHLORIDE
     Indication: Prophylaxis
     Route: 048
     Dates: start: 20201214, end: 20220531
  4. LANSOPRAZOLE [Concomitant]
     Active Substance: LANSOPRAZOLE
     Indication: Gastrointestinal disorder prophylaxis
     Route: 048
     Dates: start: 20201214
  5. ALLOPURINOL [Concomitant]
     Active Substance: ALLOPURINOL
     Indication: Prophylaxis
     Route: 048
     Dates: start: 20210112
  6. ALPHA LIPOIC ACID [Concomitant]
     Active Substance: .ALPHA.-LIPOIC ACID
     Indication: Peripheral sensory neuropathy
     Route: 048
     Dates: start: 20210406, end: 20220304
  7. ENOXAPARIN [Concomitant]
     Active Substance: ENOXAPARIN
     Indication: Prophylaxis
     Route: 058
     Dates: start: 20211015, end: 20220304

REACTIONS (3)
  - Foot fracture [Recovered/Resolved]
  - COVID-19 pneumonia [Recovered/Resolved]
  - Medication error [Unknown]

NARRATIVE: CASE EVENT DATE: 20210811
